FAERS Safety Report 4837725-X (Version None)
Quarter: 2005Q4

REPORT INFORMATION
  Report Type: 
  Country: None (occurrence: None)
  Receive Date: 20051123
  Receipt Date: 20051123
  Transmission Date: 20060501
  Serious: Yes (Hospitalization)
  Sender: FDA-Public Use
  Company Number: None

PATIENT
  Sex: Male

DRUGS (4)
  1. IBUPROFEN [Suspect]
     Indication: ABDOMINAL PAIN UPPER
     Dosage: 600MG PO PRN
     Route: 048
  2. IBUPROFEN [Suspect]
     Indication: HEADACHE
     Dosage: 600MG PO PRN
     Route: 048
  3. FAMOTIDINE [Concomitant]
  4. M.V.I. [Concomitant]

REACTIONS (6)
  - ABDOMINAL PAIN UPPER [None]
  - CONDITION AGGRAVATED [None]
  - GASTRIC ULCER [None]
  - MELAENA [None]
  - OCCULT BLOOD POSITIVE [None]
  - SYNCOPE [None]
